FAERS Safety Report 24055365 (Version 2)
Quarter: 2024Q3

REPORT INFORMATION
  Report Type: Spontaneous
  Country: DK (occurrence: DK)
  Receive Date: 20240705
  Receipt Date: 20240723
  Transmission Date: 20241016
  Serious: Yes (Other)
  Sender: BAYER
  Company Number: DK-BAYER-2024A095060

PATIENT

DRUGS (2)
  1. XOFIGO [Suspect]
     Active Substance: RADIUM RA-223 DICHLORIDE
     Indication: Metastases to bone
     Dosage: UNK
     Dates: start: 20240508, end: 20240508
  2. XOFIGO [Suspect]
     Active Substance: RADIUM RA-223 DICHLORIDE
     Indication: Hormone-refractory prostate cancer
     Dosage: UNK
     Dates: start: 20240605, end: 20240605

REACTIONS (2)
  - Bone pain [None]
  - Metastases to bone [None]
